FAERS Safety Report 8377956-8 (Version None)
Quarter: 2012Q2

REPORT INFORMATION
  Report Type: 
  Country: None (occurrence: None)
  Receive Date: 20120522
  Receipt Date: 20120515
  Transmission Date: 20120825
  Serious: No
  Sender: FDA-Public Use
  Company Number: JP-B.I. PHARMACEUTICALS,INC./RIDGEFIELD-2012-BP-10243NB

PATIENT
  Age: 63 Year
  Sex: Male

DRUGS (2)
  1. REMINARON [Concomitant]
     Indication: ANTICOAGULANT THERAPY
     Dosage: 600 MG
     Route: 042
     Dates: start: 20120501, end: 20120508
  2. PRADAXA [Suspect]
     Indication: PORTAL VEIN THROMBOSIS
     Dosage: 300 MG
     Route: 048
     Dates: start: 20120501, end: 20120508

REACTIONS (1)
  - DRUG INEFFECTIVE [None]
